FAERS Safety Report 16400119 (Version 1)
Quarter: 2019Q2

REPORT INFORMATION
  Report Type: Spontaneous
  Country: US (occurrence: US)
  Receive Date: 20190606
  Receipt Date: 20190606
  Transmission Date: 20190711
  Serious: No
  Sender: FDA-Public Use
  Company Number: US-ALLERGAN-1850534US

PATIENT
  Age: 67 Year
  Sex: Female

DRUGS (3)
  1. UNSPECIFIED THYROID MEDICTAION [Concomitant]
     Indication: THYROID DISORDER
     Dosage: UNK
     Route: 065
  2. KYBELLA [Suspect]
     Active Substance: DEOXYCHOLIC ACID
     Indication: FAT TISSUE INCREASED
     Dosage: 1.4 ML, SINGLE
     Route: 058
     Dates: start: 20180216, end: 20180216
  3. KYBELLA [Suspect]
     Active Substance: DEOXYCHOLIC ACID
     Dosage: 1.6 ML, SINGLE
     Route: 058
     Dates: start: 20171215, end: 20171215

REACTIONS (4)
  - Off label use [Unknown]
  - Injection site pruritus [Not Recovered/Not Resolved]
  - Drug ineffective [Unknown]
  - Mental disorder [Not Recovered/Not Resolved]

NARRATIVE: CASE EVENT DATE: 201802
